FAERS Safety Report 9542581 (Version 2)
Quarter: 2013Q4

REPORT INFORMATION
  Report Type: Spontaneous
  Country: US (occurrence: US)
  Receive Date: 20130923
  Receipt Date: 20131002
  Transmission Date: 20140711
  Serious: No
  Sender: FDA-Public Use
  Company Number: US-PFIZER INC-2013270043

PATIENT
  Sex: Male

DRUGS (2)
  1. TERRAMYCIN [Suspect]
     Dosage: UNK
  2. NORTRIPTYLINE [Suspect]
     Dosage: UNK

REACTIONS (1)
  - Drug hypersensitivity [Unknown]
